FAERS Safety Report 9089753 (Version 1)
Quarter: 2013Q1

REPORT INFORMATION
  Report Type: Spontaneous
  Country: US (occurrence: US)
  Receive Date: 20130201
  Receipt Date: 20130201
  Transmission Date: 20140127
  Serious: Yes (Other)
  Sender: FDA-Public Use
  Company Number: US-PFIZER INC-2013036970

PATIENT
  Sex: Female

DRUGS (1)
  1. TETRACYCLINE HCL [Suspect]
     Indication: EAR INFECTION
     Dosage: UNK
     Dates: start: 1974

REACTIONS (5)
  - Tooth abscess [Unknown]
  - Tooth abscess [Unknown]
  - Tooth infection [Unknown]
  - Pain [Unknown]
  - Swelling face [Unknown]
